FAERS Safety Report 8959535 (Version 1)
Quarter: 2012Q4

REPORT INFORMATION
  Report Type: 
  Country: JP (occurrence: JP)
  Receive Date: 20121212
  Receipt Date: 20121212
  Transmission Date: 20130627
  Serious: Yes (Other)
  Sender: FDA-Public Use
  Company Number: JP-TEVA-374069ISR

PATIENT
  Age: 56 Year
  Sex: Male

DRUGS (3)
  1. CLOBETASOL [Suspect]
     Indication: PSORIASIS
     Dosage: Daily dose: 4-6g/ day
     Route: 061
  2. CALCIPOTRIOL [Concomitant]
     Indication: PSORIASIS
     Dosage: occasional 3-5g/day (50microg/g)
     Route: 065
  3. CICLOSPORIN [Concomitant]
     Indication: PSORIASIS
     Dosage: 2-3 mg/kg/day
     Route: 065

REACTIONS (3)
  - Osteonecrosis [Recovering/Resolving]
  - Skin atrophy [Unknown]
  - Physical disability [Unknown]
